FAERS Safety Report 5076910-1 (Version None)
Quarter: 2006Q3

REPORT INFORMATION
  Report Type: 
  Country: None (occurrence: None)
  Receive Date: 20060807
  Receipt Date: 20060726
  Transmission Date: 20061208
  Serious: Yes (Hospitalization)
  Sender: FDA-Public Use
  Company Number: US200607004730

PATIENT
  Age: 31 Year
  Sex: Female

DRUGS (4)
  1. DULOXETINE HYDROCHLORIDE (DULOXETINE HYDROCHLORIDE) [Suspect]
  2. PAROXETINE [Concomitant]
  3. BUPROPION HCL [Concomitant]
  4. CLONAZEPAM [Concomitant]

REACTIONS (12)
  - ACUTE MYOCARDIAL INFARCTION [None]
  - BLOOD PRESSURE INCREASED [None]
  - CARDIAC DISORDER [None]
  - CARDIOMYOPATHY [None]
  - CLONUS [None]
  - CONFUSIONAL STATE [None]
  - HEART RATE INCREASED [None]
  - MUSCLE TWITCHING [None]
  - NYSTAGMUS [None]
  - PERICARDITIS [None]
  - SEROTONIN SYNDROME [None]
  - SOMNOLENCE [None]
